FAERS Safety Report 9078462 (Version 1)
Quarter: 2013Q1

REPORT INFORMATION
  Report Type: Report from Study
  Country: US (occurrence: US)
  Receive Date: 20130130
  Receipt Date: 20130130
  Transmission Date: 20140127
  Serious: No
  Sender: FDA-Public Use
  Company Number: US-ABBOTT-12P-163-0976625-00

PATIENT
  Age: 87 Year
  Sex: Female

DRUGS (15)
  1. HUMIRA [Suspect]
     Indication: CROHN^S DISEASE
     Dates: start: 20111128
  2. PREDNISONE [Concomitant]
     Indication: PRODUCT USED FOR UNKNOWN INDICATION
  3. LEVOXYL [Concomitant]
     Indication: PRODUCT USED FOR UNKNOWN INDICATION
  4. MULTIGEN-AL [Concomitant]
     Indication: ANAEMIA
  5. LASIX [Concomitant]
     Indication: FLUID RETENTION
  6. ASPIRIN [Concomitant]
     Indication: PRODUCT USED FOR UNKNOWN INDICATION
     Dosage: LOW DOSE
  7. ISOSORBIDE [Concomitant]
     Indication: PRODUCT USED FOR UNKNOWN INDICATION
  8. GABAPENTIN [Concomitant]
     Indication: PRODUCT USED FOR UNKNOWN INDICATION
  9. OMEPRAZOLE [Concomitant]
     Indication: PRODUCT USED FOR UNKNOWN INDICATION
  10. VITAMIN D [Concomitant]
     Indication: PRODUCT USED FOR UNKNOWN INDICATION
     Dosage: EVERY DAY
  11. FOLIC ACID [Concomitant]
     Indication: PRODUCT USED FOR UNKNOWN INDICATION
  12. ALBUTEROL [Concomitant]
     Indication: ASTHMA
     Dosage: 1-2 EVERY DAY
  13. OMEGA 3 [Concomitant]
     Indication: PRODUCT USED FOR UNKNOWN INDICATION
  14. EVISTA [Concomitant]
     Indication: PRODUCT USED FOR UNKNOWN INDICATION
  15. LANTUS [Concomitant]
     Indication: DIABETES MELLITUS
     Dosage: AT BEDTIME

REACTIONS (2)
  - Crohn^s disease [Not Recovered/Not Resolved]
  - Diarrhoea [Not Recovered/Not Resolved]
